FAERS Safety Report 4437241-3 (Version None)
Quarter: 2004Q3

REPORT INFORMATION
  Report Type: 
  Country: None (occurrence: None)
  Receive Date: 20040827
  Receipt Date: 20040816
  Transmission Date: 20050211
  Serious: Yes (Other)
  Sender: FDA-Public Use
  Company Number: 2004198119BWH

PATIENT
  Age: 59 Year
  Sex: Female
  Weight: 61.6892 kg

DRUGS (3)
  1. MYCELEX [Suspect]
     Indication: BONE MARROW TRANSPLANT
     Dosage: ORAL
     Route: 048
     Dates: start: 20020601
  2. CYCLOSPORINE [Concomitant]
  3. PREDNISONE [Concomitant]

REACTIONS (1)
  - GRAFT VERSUS HOST DISEASE [None]
